FAERS Safety Report 5829823-9 (Version None)
Quarter: 2008Q3

REPORT INFORMATION
  Report Type: 
  Country: None (occurrence: None)
  Receive Date: 20080801
  Receipt Date: 20080425
  Transmission Date: 20090109
  Serious: No
  Sender: FDA-Public Use
  Company Number: US-BAYER-200812044BCC

PATIENT
  Age: 87 Year
  Sex: Female
  Weight: 60 kg

DRUGS (3)
  1. ALEVE [Suspect]
     Indication: ANALGESIA
     Dosage: TOTAL DAILY DOSE: 440 MG  UNIT DOSE: 220 MG
     Route: 048
     Dates: start: 20080425, end: 20080425
  2. OSCAL [Concomitant]
  3. VITAMIN TAB [Concomitant]

REACTIONS (1)
  - ANALGESIA [None]
